FAERS Safety Report 24463649 (Version 1)
Quarter: 2024Q4

REPORT INFORMATION
  Report Type: Report from Study
  Country: US (occurrence: US)
  Receive Date: 20241018
  Receipt Date: 20241018
  Transmission Date: 20250115
  Serious: No
  Sender: ROCHE
  Company Number: US-ROCHE-3414825

PATIENT
  Age: 52 Year
  Sex: Female
  Weight: 51.71 kg

DRUGS (13)
  1. XOLAIR [Suspect]
     Active Substance: OMALIZUMAB
     Indication: Idiopathic urticaria
     Route: 058
     Dates: start: 2023
  2. XOLAIR [Suspect]
     Active Substance: OMALIZUMAB
     Indication: Rosacea
     Route: 058
  3. XOLAIR [Suspect]
     Active Substance: OMALIZUMAB
     Indication: Immunology test abnormal
  4. XOLAIR [Suspect]
     Active Substance: OMALIZUMAB
     Indication: Rash
  5. XOLAIR [Suspect]
     Active Substance: OMALIZUMAB
     Indication: Seasonal allergy
  6. XOLAIR [Suspect]
     Active Substance: OMALIZUMAB
     Indication: Food allergy
  7. EPIPEN [Concomitant]
     Active Substance: EPINEPHRINE
  8. MONTELUKAST [Concomitant]
     Active Substance: MONTELUKAST
  9. NAPROXEN [Concomitant]
     Active Substance: NAPROXEN
     Route: 048
  10. LOESTRIN NOS [Concomitant]
     Active Substance: ETHINYL ESTRADIOL\NORETHINDRONE ACETATE
  11. CYMBALTA [Concomitant]
     Active Substance: DULOXETINE HYDROCHLORIDE
  12. WELLBUTRIN [Concomitant]
     Active Substance: BUPROPION HYDROCHLORIDE
  13. HYDROXYZINE [Concomitant]
     Active Substance: HYDROXYZINE HYDROCHLORIDE

REACTIONS (5)
  - Rash [Not Recovered/Not Resolved]
  - Insomnia [Unknown]
  - Chest discomfort [Unknown]
  - Urticaria [Unknown]
  - Depressed mood [Unknown]
